FAERS Safety Report 18577027 (Version 1)
Quarter: 2020Q4

REPORT INFORMATION
  Report Type: Spontaneous
  Country: JP (occurrence: JP)
  Receive Date: 20201204
  Receipt Date: 20201204
  Transmission Date: 20210114
  Serious: Yes (Other)
  Sender: FDA-Public Use
  Company Number: JP-ASTRAZENECA-2020SF59845

PATIENT
  Age: 62 Year
  Sex: Female
  Weight: 46 kg

DRUGS (1)
  1. LYNPARZA [Suspect]
     Active Substance: OLAPARIB
     Indication: OVARIAN CANCER
     Route: 048
     Dates: start: 20180727

REACTIONS (3)
  - Adverse drug reaction [Unknown]
  - Metastases to liver [Unknown]
  - Malignant neoplasm progression [Unknown]
